FAERS Safety Report 22199047 (Version 2)
Quarter: 2023Q2

REPORT INFORMATION
  Report Type: Report from Study
  Country: ES (occurrence: ES)
  Receive Date: 20230411
  Receipt Date: 20230418
  Transmission Date: 20230721
  Serious: No
  Sender: FDA-Public Use
  Company Number: ES-SEATTLE GENETICS-2023SGN03550

PATIENT
  Sex: Female
  Weight: 40.5 kg

DRUGS (9)
  1. TISOTUMAB VEDOTIN [Suspect]
     Active Substance: TISOTUMAB VEDOTIN
     Indication: Non-small cell lung cancer
     Dosage: 0.9 MG/KG DAY 1, 8 AND 15 OF EVERY 28 DAY CYCLE
     Route: 042
     Dates: start: 20210224
  2. OMEPRAZOLE [Concomitant]
     Active Substance: OMEPRAZOLE
     Dosage: 20 MG, QD
     Dates: start: 20210220
  3. LORAZEPAM [Concomitant]
     Active Substance: LORAZEPAM
     Indication: Anxiety
     Dosage: 1 MG AS NEEDED
     Dates: start: 20210212
  4. AMLODIPINE [Concomitant]
     Active Substance: AMLODIPINE BESYLATE
     Dosage: 5 MG, QHS
     Dates: start: 20200320
  5. ENALAPRIL [Concomitant]
     Active Substance: ENALAPRIL
     Indication: Hypertension
     Dosage: 20 MG, QD
     Dates: start: 20210212
  6. ALPHAGAN P [Concomitant]
     Active Substance: BRIMONIDINE TARTRATE
     Indication: Vasoconstriction
     Dosage: 3 DROPS IN EACH EYE IMMEDIATELY PRIOR TO INFUSION
     Route: 047
  7. DEXAMETHASONE [Concomitant]
     Active Substance: DEXAMETHASONE
     Dosage: 1 DROP THREE TIMES THE DAY BEFORE, THE DAY OF TREATMENT, AND TWO DAYS AFTER
     Route: 047
  8. SYSTANE (HYPROMELLOSE 2910 (4000 MPA.S)) [Concomitant]
     Active Substance: HYPROMELLOSE 2910 (4000 MPA.S)
     Indication: Eye lubrication therapy
     Dosage: AS NEEDED ANY TIME DURING THE CYCLE
     Route: 047
  9. BISOPROLOL [Concomitant]
     Active Substance: BISOPROLOL
     Dosage: 1.5 MG, BID
     Dates: start: 20230215

REACTIONS (1)
  - Vision blurred [Recovering/Resolving]

NARRATIVE: CASE EVENT DATE: 20230327
